FAERS Safety Report 10722218 (Version 1)
Quarter: 2015Q1

REPORT INFORMATION
  Report Type: Spontaneous
  Country: US (occurrence: US)
  Receive Date: 20150119
  Receipt Date: 20150119
  Transmission Date: 20150721
  Serious: Yes (Hospitalization)
  Sender: FDA-Public Use
  Company Number: US-PFIZER INC-2015017166

PATIENT
  Sex: Female

DRUGS (2)
  1. PROCARDIA [Suspect]
     Active Substance: NIFEDIPINE
     Indication: SCLERODERMA
     Dosage: 20 MG, UNK
     Dates: start: 198310
  2. PROCARDIA [Suspect]
     Active Substance: NIFEDIPINE
     Indication: CARDIOVASCULAR DISORDER

REACTIONS (3)
  - Drug hypersensitivity [Recovered/Resolved]
  - Headache [Recovered/Resolved]
  - Product use issue [Unknown]

NARRATIVE: CASE EVENT DATE: 198310
